FAERS Safety Report 7683971-X (Version None)
Quarter: 2011Q3

REPORT INFORMATION
  Report Type: 
  Country: None (occurrence: None)
  Receive Date: 20110815
  Receipt Date: 20110801
  Transmission Date: 20111222
  Serious: Yes (Other)
  Sender: FDA-Public Use
  Company Number: PHHY2011US69521

PATIENT
  Sex: Female

DRUGS (10)
  1. ASCORBIC ACID [Concomitant]
  2. VITAMIN D [Concomitant]
  3. MULTI-VITAMINS [Concomitant]
  4. DIOVAN HCT [Suspect]
     Dosage: 1 DF, QD (160 MG VALS AND 25 MG HYDR)
     Route: 048
  5. FISH OIL [Concomitant]
  6. DILTIAZEM HYDROCHLORIDE [Concomitant]
  7. ASPIRIN [Concomitant]
  8. CALCIUM W/MAGNESIUM [Concomitant]
  9. GLUCOSAMINE [Concomitant]
  10. FLORAGLO [Concomitant]

REACTIONS (3)
  - FALL [None]
  - LOSS OF CONSCIOUSNESS [None]
  - DIZZINESS [None]
